FAERS Safety Report 15440588 (Version 3)
Quarter: 2018Q4

REPORT INFORMATION
  Report Type: Spontaneous
  Country: GE (occurrence: GE)
  Receive Date: 20180928
  Receipt Date: 20181206
  Transmission Date: 20190204
  Serious: Yes (Death, Life-Threatening, Other)
  Sender: FDA-Public Use
  Company Number: GE-PFIZER INC-2018391725

PATIENT
  Age: 79 Year
  Sex: Male

DRUGS (15)
  1. EUFENIL [Concomitant]
     Dosage: UNK
  2. FENTANYL. [Concomitant]
     Active Substance: FENTANYL
     Dosage: UNK
  3. FUROSEMIDE. [Concomitant]
     Active Substance: FUROSEMIDE
     Dosage: UNK
  4. KLEXANE [Concomitant]
     Active Substance: ENOXAPARIN
     Dosage: UNK
  5. NOLPAZA [Concomitant]
     Active Substance: PANTOPRAZOLE SODIUM
     Dosage: UNK
  6. CEFTRIAXONE. [Concomitant]
     Active Substance: CEFTRIAXONE
     Dosage: UNK
  7. DEXAMETHASONE. [Concomitant]
     Active Substance: DEXAMETHASONE
     Dosage: UNK
  8. MEZATON [Concomitant]
     Dosage: UNK
  9. LINEZOLID. [Suspect]
     Active Substance: LINEZOLID
     Indication: PNEUMONIA BACTERIAL
     Dosage: 600 MG, 2X/DAY
     Route: 042
     Dates: start: 20180705, end: 20180717
  10. ACTRAPID [Concomitant]
     Active Substance: INSULIN HUMAN
     Dosage: UNK
  11. ARDUAN [Concomitant]
     Active Substance: PIPECURONIUM BROMIDE
     Dosage: UNK
  12. LEVOSOL [Concomitant]
     Dosage: UNK
  13. CORDARON [Concomitant]
     Active Substance: AMIODARONE HYDROCHLORIDE
     Dosage: UNK
  14. QUAMATEL [Concomitant]
     Active Substance: FAMOTIDINE
     Dosage: UNK
  15. SOMNOPOL [Concomitant]
     Dosage: UNK

REACTIONS (4)
  - Cardiac arrest [Fatal]
  - Coagulopathy [Recovering/Resolving]
  - Pulmonary hypertension [Recovering/Resolving]
  - Prothrombin time prolonged [Recovering/Resolving]

NARRATIVE: CASE EVENT DATE: 20180713
